FAERS Safety Report 19952888 (Version 3)
Quarter: 2022Q1

REPORT INFORMATION
  Report Type: Spontaneous
  Country: US (occurrence: US)
  Receive Date: 20211013
  Receipt Date: 20220202
  Transmission Date: 20220424
  Serious: No
  Sender: FDA-Public Use
  Company Number: US-CELGENE-USA-20211001878

PATIENT
  Sex: Female
  Weight: 71.732 kg

DRUGS (3)
  1. REVLIMID [Suspect]
     Active Substance: LENALIDOMIDE
     Indication: Plasma cell myeloma
     Dosage: 25 MILLIGRAM
     Route: 048
     Dates: start: 20210401
  2. REVLIMID [Suspect]
     Active Substance: LENALIDOMIDE
     Dosage: 10 MILLIGRAM
     Route: 048
     Dates: start: 202107
  3. DEXAMETHASONE [Concomitant]
     Active Substance: DEXAMETHASONE
     Indication: Product used for unknown indication
     Route: 065

REACTIONS (6)
  - Vitamin D decreased [Unknown]
  - Blood calcium decreased [Unknown]
  - Peripheral swelling [Unknown]
  - Diarrhoea [Unknown]
  - Constipation [Unknown]
  - Joint swelling [Unknown]

NARRATIVE: CASE EVENT DATE: 20210101
